FAERS Safety Report 10786343 (Version 1)
Quarter: 2015Q1

REPORT INFORMATION
  Report Type: Spontaneous
  Country: US (occurrence: None)
  Receive Date: 20150210
  Receipt Date: 20150210
  Transmission Date: 20150721
  Serious: Yes (Other)
  Sender: FDA-Public Use
  Company Number: None

PATIENT
  Age: 30 Year
  Sex: Female
  Weight: 53.52 kg

DRUGS (3)
  1. KLONOPIN [Concomitant]
     Active Substance: CLONAZEPAM
  2. HUMIRA [Suspect]
     Active Substance: ADALIMUMAB
     Indication: CROHN^S DISEASE
     Dosage: ONE SHOT EVERY 2 WKS  INJECTION IN STOMACH
     Dates: start: 20140715, end: 20141118
  3. 6-MP [Concomitant]
     Active Substance: MERCAPTOPURINE

REACTIONS (8)
  - Rash [None]
  - Activities of daily living impaired [None]
  - Exfoliative rash [None]
  - Anxiety [None]
  - Gait disturbance [None]
  - Pain [None]
  - Rash erythematous [None]
  - Impaired work ability [None]

NARRATIVE: CASE EVENT DATE: 20140903
